FAERS Safety Report 25988543 (Version 1)
Quarter: 2025Q4

REPORT INFORMATION
  Report Type: Report from Study
  Country: IN (occurrence: IN)
  Receive Date: 20251103
  Receipt Date: 20251103
  Transmission Date: 20260117
  Serious: Yes (Hospitalization, Other)
  Sender: CIPLA
  Company Number: IN-CIPLA LTD.-2025IN13445

PATIENT

DRUGS (10)
  1. TORSEMIDE [Suspect]
     Active Substance: TORSEMIDE
     Indication: Product used for unknown indication
     Dosage: 10 MILLIGRAM, FREQUENCY: 1 (UNITS UNSPECIFIED)
     Route: 048
  2. IPRATROPIUM BROMIDE\LEVALBUTEROL SULFATE [Suspect]
     Active Substance: IPRATROPIUM BROMIDE\LEVALBUTEROL SULFATE
     Indication: Product used for unknown indication
     Dosage: 1 DOSAGE FORM, SOS (1 RESP (NEB))
  3. BUDESONIDE [Suspect]
     Active Substance: BUDESONIDE
     Indication: Product used for unknown indication
     Dosage: 1 DOSAGE FORM, SOS (1 RESP (NEB))
  4. NUROKIND LC [Concomitant]
     Indication: Product used for unknown indication
     Dosage: 1 DOSAGE FORM, QD
     Route: 065
  5. AMLODIPINE BESYLATE [Concomitant]
     Active Substance: AMLODIPINE BESYLATE
     Indication: Product used for unknown indication
     Dosage: 5 MILLIGRAM, QD
     Route: 065
  6. MODAFINIL [Concomitant]
     Active Substance: MODAFINIL
     Indication: Product used for unknown indication
     Dosage: 100 MILLIGRAM, QD
     Route: 065
  7. DIAMOX SEQUELS [Concomitant]
     Active Substance: ACETAZOLAMIDE
     Indication: Product used for unknown indication
     Dosage: 250 MILLIGRAM, BID
     Route: 065
  8. ACENOCOUMAROL [Concomitant]
     Active Substance: ACENOCOUMAROL
     Indication: Product used for unknown indication
     Dosage: 2 MILLIGRAM, QD
     Route: 065
  9. PANTOPRAZOLE SODIUM [Concomitant]
     Active Substance: PANTOPRAZOLE SODIUM
     Indication: Product used for unknown indication
     Dosage: UNK, STRENGTH 40 (UNITS UNSPECIFIED), QD
     Route: 065
  10. URIMAX [TAMSULOSIN HYDROCHLORIDE] [Concomitant]
     Indication: Product used for unknown indication
     Dosage: 0.2 MILLIGRAM, QD
     Route: 065

REACTIONS (1)
  - Cerebral haemorrhage [Recovering/Resolving]

NARRATIVE: CASE EVENT DATE: 20250101
